FAERS Safety Report 8991358 (Version 1)
Quarter: 2012Q4

REPORT INFORMATION
  Report Type: 
  Country: FR (occurrence: FR)
  Receive Date: 20121230
  Receipt Date: 20121230
  Transmission Date: 20130627
  Serious: Yes (Other)
  Sender: FDA-Public Use
  Company Number: FR-US-EMD SERONO, INC.-7173261

PATIENT
  Age: 32 Year
  Sex: Female
  Weight: 58.8 kg

DRUGS (2)
  1. CETROTIDE [Suspect]
     Indication: IN VITRO FERTILISATION
     Route: 058
     Dates: start: 20121029, end: 20121102
  2. MENOPUR [Concomitant]
     Indication: IN VITRO FERTILISATION
     Route: 058
     Dates: start: 20121026, end: 20121103

REACTIONS (2)
  - Presyncope [Recovered/Resolved]
  - Injection site pruritus [Recovered/Resolved]
